FAERS Safety Report 10487480 (Version 6)
Quarter: 2015Q2

REPORT INFORMATION
  Report Type: Report from Study
  Country: US (occurrence: US)
  Receive Date: 20141001
  Receipt Date: 20150617
  Transmission Date: 20150821
  Serious: Yes (Hospitalization)
  Sender: FDA-Public Use
  Company Number: US-SA-2014SA114843

PATIENT
  Age: 67 Year
  Sex: Male

DRUGS (3)
  1. COUMADIN [Concomitant]
     Active Substance: WARFARIN SODIUM
  2. AUBAGIO [Suspect]
     Active Substance: TERIFLUNOMIDE
     Indication: MULTIPLE SCLEROSIS
     Route: 048
  3. AUBAGIO [Suspect]
     Active Substance: TERIFLUNOMIDE
     Indication: MULTIPLE SCLEROSIS
     Route: 048
     Dates: start: 20140808, end: 201410

REACTIONS (6)
  - Nausea [Unknown]
  - Dysphonia [Recovering/Resolving]
  - Muscle twitching [Recovering/Resolving]
  - Pancreatic enzymes increased [Unknown]
  - Pulmonary embolism [Unknown]
  - Asthenia [Unknown]

NARRATIVE: CASE EVENT DATE: 201408
